FAERS Safety Report 16689943 (Version 1)
Quarter: 2019Q3

REPORT INFORMATION
  Report Type: Spontaneous
  Country: ES (occurrence: ES)
  Receive Date: 20190809
  Receipt Date: 20190809
  Transmission Date: 20191004
  Serious: Yes (Other)
  Sender: FDA-Public Use
  Company Number: ES-MYLANLABS-2019M1074411

PATIENT
  Age: 72 Year
  Sex: Male

DRUGS (7)
  1. CILOSTAZOL. [Suspect]
     Active Substance: CILOSTAZOL
     Indication: INTERMITTENT CLAUDICATION
     Dosage: 100 MILLIGRAM, QD,1 AL DIA, 1/2 ANTES DE COMER Y 1/2 ANTES DE CENAR
     Route: 048
     Dates: start: 20180917
  2. ACOVIL [Concomitant]
     Active Substance: RAMIPRIL
     Dosage: UNK
     Dates: start: 20180514
  3. UROLOSIN [Concomitant]
     Active Substance: TAMSULOSIN HYDROCHLORIDE
     Dosage: UNK
     Dates: start: 20180514
  4. OMEPRAZOLE. [Interacting]
     Active Substance: OMEPRAZOLE
     Indication: PRODUCT USED FOR UNKNOWN INDICATION
     Dosage: UNK
     Route: 065
     Dates: start: 20180514
  5. AMLODIPINO                         /00972401/ [Concomitant]
     Active Substance: AMLODIPINE BESYLATE
     Dosage: UNK
     Dates: start: 20180514
  6. SIMVASTATINA [Concomitant]
     Active Substance: SIMVASTATIN
     Dosage: UNK
     Dates: start: 20180514
  7. ASPIRIN. [Concomitant]
     Active Substance: ASPIRIN
     Dosage: UNK
     Dates: start: 20180514

REACTIONS (6)
  - Labelled drug-drug interaction medication error [Unknown]
  - Hypertension [Recovering/Resolving]
  - Tachycardia [Recovering/Resolving]
  - Angina pectoris [Recovering/Resolving]
  - Dyspnoea [Recovering/Resolving]
  - Erythema [Recovering/Resolving]

NARRATIVE: CASE EVENT DATE: 20190201
